FAERS Safety Report 8547786-2 (Version None)
Quarter: 2012Q3

REPORT INFORMATION
  Report Type: 
  Country: None (occurrence: None)
  Receive Date: 20120727
  Receipt Date: 20120118
  Transmission Date: 20120928
  Serious: Yes (Other)
  Sender: FDA-Public Use
  Company Number: US-ASTRAZENECA-2012SE02310

PATIENT
  Age: 42 Year
  Sex: Male
  Weight: 72.1 kg

DRUGS (7)
  1. NORVASC [Concomitant]
  2. SEROQUEL [Suspect]
     Indication: BIPOLAR I DISORDER
     Route: 048
     Dates: start: 20110101
  3. KEPPRA [Concomitant]
  4. XANAX [Concomitant]
     Indication: ANXIETY
  5. HALDOL [Concomitant]
     Route: 048
  6. NORCO [Concomitant]
     Indication: ABDOMINAL PAIN
  7. SEROQUEL [Suspect]
     Indication: SCHIZOPHRENIA
     Route: 048
     Dates: start: 20110101

REACTIONS (20)
  - ABDOMINAL PAIN [None]
  - OROPHARYNGEAL PAIN [None]
  - POLLAKIURIA [None]
  - SOLILOQUY [None]
  - RHINORRHOEA [None]
  - HEADACHE [None]
  - FEELING HOT [None]
  - INSOMNIA [None]
  - MEMORY IMPAIRMENT [None]
  - NERVOUS SYSTEM DISORDER [None]
  - CONVULSION [None]
  - ARTHRALGIA [None]
  - SUICIDAL IDEATION [None]
  - ANXIETY [None]
  - HALLUCINATION, AUDITORY [None]
  - VOMITING [None]
  - CONSTIPATION [None]
  - CEREBROVASCULAR ACCIDENT [None]
  - THIRST [None]
  - DIZZINESS [None]
